FAERS Safety Report 16177538 (Version 4)
Quarter: 2020Q3

REPORT INFORMATION
  Report Type: Other
  Country: DE (occurrence: DE)
  Receive Date: 20190410
  Receipt Date: 20200716
  Transmission Date: 20201102
  Serious: Yes (Other)
  Sender: FDA-Public Use
  Company Number: DE-ROCHE-2298930

PATIENT
  Sex: Male
  Weight: 82 kg

DRUGS (22)
  1. RANIBIZUMAB. [Suspect]
     Active Substance: RANIBIZUMAB
     Dosage: 0.5 MG, (LEFT EYE) 1X
     Route: 031
     Dates: start: 20160914, end: 20160914
  2. RANIBIZUMAB. [Suspect]
     Active Substance: RANIBIZUMAB
     Dosage: 0.5 MG, (LEFT EYE) 1X
     Route: 031
     Dates: start: 20170425, end: 20170425
  3. RANIBIZUMAB. [Suspect]
     Active Substance: RANIBIZUMAB
     Dosage: 0.5 MG, (LEFT EYE) UNK
     Route: 031
     Dates: start: 20170202
  4. RANIBIZUMAB. [Suspect]
     Active Substance: RANIBIZUMAB
     Dosage: 0.5 MG, (RIGHT EYE) 1X
     Route: 031
     Dates: start: 20170918
  5. RANIBIZUMAB. [Suspect]
     Active Substance: RANIBIZUMAB
     Dosage: 0.5 MG, (RIGHT EYE) 1X
     Route: 031
     Dates: start: 20161115, end: 20161115
  6. RANIBIZUMAB. [Suspect]
     Active Substance: RANIBIZUMAB
     Dosage: 0.5 MG, (LEFT EYE) 1X
     Route: 031
     Dates: start: 20161227
  7. RANIBIZUMAB. [Suspect]
     Active Substance: RANIBIZUMAB
     Dosage: 0.5 MG, (RIGHT EYE) 1X
     Route: 031
     Dates: start: 20170314
  8. RANIBIZUMAB. [Suspect]
     Active Substance: RANIBIZUMAB
     Dosage: 0.5 MG, (RIGHT EYE) 1X
     Route: 031
     Dates: start: 20171016
  9. RANIBIZUMAB. [Suspect]
     Active Substance: RANIBIZUMAB
     Indication: RETINAL VEIN OCCLUSION
     Dosage: 0.5 MG, (RIGHT EYE AND LEFT EYE) 1X
     Route: 031
     Dates: start: 20160607
  10. RANIBIZUMAB. [Suspect]
     Active Substance: RANIBIZUMAB
     Dosage: 0.5 MG, (RIGHT EYE) 1X
     Route: 031
     Dates: start: 20171016
  11. RANIBIZUMAB. [Suspect]
     Active Substance: RANIBIZUMAB
     Dosage: 0.5 MG, (RIGHT EYE) 1X
     Route: 031
     Dates: start: 20161018
  12. RANIBIZUMAB. [Suspect]
     Active Substance: RANIBIZUMAB
     Dosage: 0.5 MG, (RIGHT EYE) 1X
     Route: 031
     Dates: start: 20170118, end: 20170118
  13. RANIBIZUMAB. [Suspect]
     Active Substance: RANIBIZUMAB
     Dosage: 0.5 MG, (LEFT EYE) 1X
     Route: 031
     Dates: start: 20160718
  14. RANIBIZUMAB. [Suspect]
     Active Substance: RANIBIZUMAB
     Dosage: 0.5 MG, (RIGHT EYE) 1X
     Route: 031
     Dates: start: 20161213
  15. RANIBIZUMAB. [Suspect]
     Active Substance: RANIBIZUMAB
     Dosage: 0.5 MG, (RIGHT EYE) 1X
     Route: 031
     Dates: start: 20171206
  16. RANIBIZUMAB. [Suspect]
     Active Substance: RANIBIZUMAB
     Dosage: 0.5 MG, (RIGHT EYE) 1X
     Route: 031
     Dates: start: 20180104, end: 20180104
  17. RANIBIZUMAB. [Suspect]
     Active Substance: RANIBIZUMAB
     Indication: VISUAL IMPAIRMENT
     Dosage: (RIGHT EYE AND LEFT EYE) 1X
     Route: 031
     Dates: start: 20160412
  18. RANIBIZUMAB. [Suspect]
     Active Substance: RANIBIZUMAB
     Dosage: 0.5 MG, (RIGHT EYE) 1X
     Route: 031
     Dates: start: 20170418, end: 20170418
  19. RANIBIZUMAB. [Suspect]
     Active Substance: RANIBIZUMAB
     Dosage: 0.5 MG, (LEFT EYE) 1X
     Route: 031
     Dates: start: 20170919
  20. RANIBIZUMAB. [Suspect]
     Active Substance: RANIBIZUMAB
     Indication: MACULAR OEDEMA
     Dosage: 0.5 MG, (RIGHT EYE AND LEFT EYE) 1X
     Route: 031
     Dates: start: 20160510
  21. RANIBIZUMAB. [Suspect]
     Active Substance: RANIBIZUMAB
     Dosage: 0.5 MG, (LEFT EYE) 1X
     Route: 031
     Dates: start: 20161128
  22. RANIBIZUMAB. [Suspect]
     Active Substance: RANIBIZUMAB
     Dosage: 0.5 MG, (LEFT EYE) 1X
     Route: 031
     Dates: start: 20171017

REACTIONS (5)
  - Retinal thickening [Unknown]
  - Retinal oedema [Recovering/Resolving]
  - Posterior capsule opacification [Recovered/Resolved]
  - Vitreous haemorrhage [Recovering/Resolving]
  - Visual acuity reduced [Unknown]

NARRATIVE: CASE EVENT DATE: 20161012
